FAERS Safety Report 19711429 (Version 1)
Quarter: 2021Q3

REPORT INFORMATION
  Report Type: Spontaneous
  Country: US (occurrence: US)
  Receive Date: 20210817
  Receipt Date: 20210817
  Transmission Date: 20211014
  Serious: No
  Sender: FDA-Public Use
  Company Number: US-GLENMARK PHARMACEUTICALS-2021GMK052820

PATIENT

DRUGS (1)
  1. ROSUVASTATIN CALCIUM TABLETS 10 MG [Suspect]
     Active Substance: ROSUVASTATIN CALCIUM
     Indication: BLOOD CHOLESTEROL INCREASED
     Dosage: 10 MILLIGRAM, OD
     Route: 048
     Dates: start: 202010, end: 20210309

REACTIONS (4)
  - Nightmare [Recovered/Resolved]
  - Drug ineffective [Unknown]
  - Product size issue [Unknown]
  - Product physical issue [Unknown]

NARRATIVE: CASE EVENT DATE: 2021
